FAERS Safety Report 19982649 (Version 4)
Quarter: 2021Q4

REPORT INFORMATION
  Report Type: Report from Study
  Country: CH (occurrence: CH)
  Receive Date: 20211021
  Receipt Date: 20211203
  Transmission Date: 20220303
  Serious: Yes (Hospitalization)
  Sender: FDA-Public Use
  Company Number: CH-ABBVIE-21K-151-3755184-00

PATIENT
  Age: 73 Year
  Sex: Female

DRUGS (3)
  1. CARBIDOPA\LEVODOPA [Suspect]
     Active Substance: CARBIDOPA\LEVODOPA
     Indication: Parkinson^s disease
     Dosage: MD: 4 ML, CRD: 3.8 ML/H, CRN: 2.9 ML/H, ED: 1.5 ML 24 H THERAPY
     Route: 050
     Dates: start: 20181015
  2. CARBIDOPA\LEVODOPA [Suspect]
     Active Substance: CARBIDOPA\LEVODOPA
     Route: 050
  3. PREGABALIN [Suspect]
     Active Substance: PREGABALIN
     Indication: Product used for unknown indication
     Route: 065
     Dates: start: 2021, end: 2021

REACTIONS (13)
  - Stoma site pain [Unknown]
  - Medical device site discomfort [Unknown]
  - Frustration tolerance decreased [Unknown]
  - Staphylococcal infection [Unknown]
  - Medical device site vesicles [Unknown]
  - Stoma site discharge [Not Recovered/Not Resolved]
  - Pain [Unknown]
  - Pruritus [Unknown]
  - Stoma site erythema [Not Recovered/Not Resolved]
  - Stoma site odour [Unknown]
  - Stoma site inflammation [Not Recovered/Not Resolved]
  - Parkinson^s disease [Unknown]
  - Stoma site erythema [Not Recovered/Not Resolved]

NARRATIVE: CASE EVENT DATE: 20210101
